FAERS Safety Report 5747577-1 (Version None)
Quarter: 2008Q2

REPORT INFORMATION
  Report Type: 
  Country: None (occurrence: None)
  Receive Date: 20080523
  Receipt Date: 20080508
  Transmission Date: 20081010
  Serious: Yes (Other)
  Sender: FDA-Public Use
  Company Number: US-AVENTIS-200812250EU

PATIENT
  Age: 65 Year
  Sex: Male

DRUGS (12)
  1. LOVENOX [Suspect]
     Indication: THROMBOSIS PROPHYLAXIS
     Route: 058
     Dates: start: 20070724, end: 20070724
  2. LIDOCAINE [Concomitant]
     Indication: ANAESTHESIA
     Route: 042
     Dates: start: 20070723, end: 20070723
  3. VERSED [Concomitant]
     Indication: ANAESTHESIA
     Route: 042
     Dates: start: 20070723, end: 20070723
  4. PROPOFOL [Concomitant]
     Indication: ANAESTHESIA
     Route: 042
     Dates: start: 20070723, end: 20070723
  5. RINGER-LACTATE                     /01126301/ [Concomitant]
     Indication: ANAESTHESIA
     Route: 042
     Dates: start: 20070723, end: 20070723
  6. FENTANYL [Concomitant]
     Indication: ANAESTHESIA
     Dates: start: 20070723, end: 20070723
  7. MARCAINE                           /00330101/ [Concomitant]
     Indication: ANAESTHESIA
     Dates: start: 20070723, end: 20070723
  8. MORPHINE [Concomitant]
     Indication: PROCEDURAL PAIN
     Route: 042
     Dates: start: 20070723, end: 20070724
  9. PERCOCET [Concomitant]
     Indication: PROCEDURAL PAIN
     Dosage: DOSE: 5/325
     Dates: start: 20070723
  10. VANCOMYCIN [Concomitant]
     Indication: INFECTION PROPHYLAXIS
     Route: 042
     Dates: start: 20070723, end: 20070723
  11. LIPITOR [Concomitant]
     Indication: HYPERLIPIDAEMIA
     Route: 048
     Dates: start: 20060601
  12. TORADOL [Concomitant]
     Indication: PROCEDURAL PAIN
     Route: 042
     Dates: start: 20070723, end: 20070724

REACTIONS (4)
  - ALANINE AMINOTRANSFERASE INCREASED [None]
  - BLOOD BILIRUBIN INCREASED [None]
  - BLOOD BILIRUBIN UNCONJUGATED INCREASED [None]
  - LIVER FUNCTION TEST ABNORMAL [None]
